FAERS Safety Report 7466535-2 (Version None)
Quarter: 2011Q2

REPORT INFORMATION
  Report Type: 
  Country: None (occurrence: None)
  Receive Date: 20110509
  Receipt Date: 20110427
  Transmission Date: 20111010
  Serious: Yes (Other)
  Sender: FDA-Public Use
  Company Number: TR-WATSON-2011-06225

PATIENT
  Age: 18 Month
  Sex: Male

DRUGS (1)
  1. VECURONIUM BROMIDE [Suspect]
     Indication: SKIN TEST
     Dosage: 1 MG, SINGLE
     Route: 042

REACTIONS (1)
  - ANAPHYLACTIC REACTION [None]
